FAERS Safety Report 7658694-3 (Version None)
Quarter: 2011Q3

REPORT INFORMATION
  Report Type: 
  Country: None (occurrence: None)
  Receive Date: 20110804
  Receipt Date: 20110804
  Transmission Date: 20111222
  Serious: Yes (Life-Threatening, Hospitalization)
  Sender: FDA-Public Use
  Company Number: None

PATIENT
  Age: 68 Year
  Sex: Female
  Weight: 63.2 kg

DRUGS (3)
  1. XELODA [Suspect]
     Indication: METASTASES TO BONE
     Dosage: 1650 BID 14D ON 7D OFF PO
     Route: 048
     Dates: start: 20110517
  2. XELODA [Suspect]
     Indication: BREAST CANCER
     Dosage: 1650 BID 14D ON 7D OFF PO
     Route: 048
     Dates: start: 20110517
  3. XELODA [Suspect]
     Indication: METASTASES TO LIVER
     Dosage: 1650 BID 14D ON 7D OFF PO
     Route: 048
     Dates: start: 20110517

REACTIONS (4)
  - DIARRHOEA [None]
  - DEHYDRATION [None]
  - BLOOD ELECTROLYTES DECREASED [None]
  - BLOOD POTASSIUM DECREASED [None]
